FAERS Safety Report 5742493-3 (Version None)
Quarter: 2008Q2

REPORT INFORMATION
  Report Type: 
  Country: None (occurrence: None)
  Receive Date: 20080519
  Receipt Date: 20080509
  Transmission Date: 20081010
  Serious: Yes (Other)
  Sender: FDA-Public Use
  Company Number: US-JNJFOC-20080502787

PATIENT
  Sex: Female
  Weight: 62.14 kg

DRUGS (4)
  1. MOTRIN [Suspect]
     Indication: PAIN
  2. UNSPECIFIED DIABETES MEDICATION [Concomitant]
     Indication: DIABETES MELLITUS
  3. UNSPECIFIED HYPERTENSIVE MEDICATION [Concomitant]
     Indication: HYPERTENSION
  4. UNSPECIFIED CHOLESTEROL MEDICATION [Concomitant]
     Indication: BLOOD CHOLESTEROL ABNORMAL

REACTIONS (1)
  - BREAST CANCER [None]
